FAERS Safety Report 7189889-3 (Version None)
Quarter: 2010Q4

REPORT INFORMATION
  Report Type: 
  Country: None (occurrence: None)
  Receive Date: 20101223
  Receipt Date: 20101211
  Transmission Date: 20110411
  Serious: Yes (Hospitalization, Other)
  Sender: FDA-Public Use
  Company Number: ES-PAR PHARMACEUTICAL, INC-2010SCPR002343

PATIENT
  Age: 40 Year
  Sex: Female

DRUGS (5)
  1. CABERGOLINE [Suspect]
     Indication: PITUITARY TUMOUR BENIGN
     Dosage: 0.5 MG/WEEK
     Route: 065
  2. CABERGOLINE [Suspect]
     Dosage: 0.25 MG/WEEK
     Route: 065
  3. CABERGOLINE [Suspect]
     Dosage: 0.75 MG/WEEK
     Route: 065
  4. CABERGOLINE [Suspect]
     Dosage: 2 MG/WEEK
     Route: 065
  5. CABERGOLINE [Suspect]
     Dosage: 3 MG/WEEK
     Route: 065

REACTIONS (6)
  - BLOOD CORTISOL DECREASED [None]
  - DIABETES INSIPIDUS [None]
  - DRUG RESISTANCE [None]
  - PITUITARY HAEMORRHAGE [None]
  - PITUITARY TUMOUR BENIGN [None]
  - SECONDARY HYPOTHYROIDISM [None]
